FAERS Safety Report 9371304 (Version 1)
Quarter: 2013Q2

REPORT INFORMATION
  Report Type: Spontaneous
  Country: US (occurrence: None)
  Receive Date: 20130503
  Receipt Date: 20130503
  Transmission Date: 20140414
  Serious: No
  Sender: FDA-Public Use
  Company Number: None

PATIENT
  Age: 43 Year
  Sex: Male
  Weight: 69.85 kg

DRUGS (1)
  1. CREST 3D WHITESTRIPS WITH ADVANCED DEAL, WHITENING POWER [Suspect]
     Indication: DENTAL CARE
     Dosage: ONCE DAILY FOR 14 DAYS
     Route: 048
     Dates: start: 20130423, end: 20130427

REACTIONS (2)
  - Vomiting [None]
  - Nausea [None]
